FAERS Safety Report 23868103 (Version 1)
Quarter: 2024Q2

REPORT INFORMATION
  Report Type: Spontaneous
  Country: US (occurrence: None)
  Receive Date: 20240516
  Receipt Date: 20240516
  Transmission Date: 20240715
  Serious: Yes (Other)
  Sender: FDA-Public Use
  Company Number: None

PATIENT
  Age: 70 Year
  Sex: Male
  Weight: 92 kg

DRUGS (1)
  1. CAMZYOS [Suspect]
     Active Substance: MAVACAMTEN
     Dosage: 5 MG DAILY ORAL
     Route: 048
     Dates: start: 20230601

REACTIONS (7)
  - Myalgia [None]
  - Arthralgia [None]
  - Pain in extremity [None]
  - Fatigue [None]
  - Dizziness [None]
  - Tinnitus [None]
  - Headache [None]

NARRATIVE: CASE EVENT DATE: 20240516
